FAERS Safety Report 21745862 (Version 1)
Quarter: 2022Q4

REPORT INFORMATION
  Report Type: Spontaneous
  Country: ET (occurrence: ET)
  Receive Date: 20221219
  Receipt Date: 20221219
  Transmission Date: 20230112
  Serious: Yes (Death, Hospitalization)
  Sender: FDA-Public Use
  Company Number: None

PATIENT
  Age: 39 Year
  Sex: Female

DRUGS (18)
  1. AZITHROMYCIN [Suspect]
     Active Substance: AZITHROMYCIN
     Indication: Product used for unknown indication
     Route: 065
  2. CEFTRIAXONE\SULBACTAM [Suspect]
     Active Substance: CEFTRIAXONE\SULBACTAM
     Indication: Product used for unknown indication
     Route: 065
  3. CEFTRIAXONE\SULBACTAM [Suspect]
     Active Substance: CEFTRIAXONE\SULBACTAM
     Route: 042
  4. DEXAMETHASONE [Suspect]
     Active Substance: DEXAMETHASONE
     Indication: Product used for unknown indication
     Route: 065
  5. DEXAMETHASONE [Suspect]
     Active Substance: DEXAMETHASONE
     Route: 042
  6. VALPROATE SODIUM [Concomitant]
     Active Substance: VALPROATE SODIUM
     Indication: Cerebral palsy
     Route: 048
  7. TIMOLOL [Concomitant]
     Active Substance: TIMOLOL
     Indication: Angle closure glaucoma
     Route: 065
  8. TROPICAMIDE [Concomitant]
     Active Substance: TROPICAMIDE
     Indication: Angle closure glaucoma
     Route: 065
  9. ACETAZOLAMIDE [Concomitant]
     Active Substance: ACETAZOLAMIDE
     Indication: Angle closure glaucoma
     Route: 048
  10. PREDNISOLONE [Concomitant]
     Active Substance: PREDNISOLONE
     Indication: Angle closure glaucoma
     Route: 048
  11. HEPARIN [Concomitant]
     Active Substance: HEPARIN SODIUM
     Indication: Product used for unknown indication
     Dosage: 17500
     Route: 058
  12. VITAMIN C [Concomitant]
     Active Substance: ASCORBIC ACID
     Indication: Product used for unknown indication
     Route: 048
  13. ZINC [Concomitant]
     Active Substance: ZINC
     Indication: Product used for unknown indication
     Route: 048
  14. VANCOMYCIN [Concomitant]
     Active Substance: VANCOMYCIN
     Route: 065
  15. INSULIN NOS [Concomitant]
     Active Substance: INSULIN NOS
     Dosage: 16/8
     Route: 058
  16. TIGECYCLINE [Concomitant]
     Active Substance: TIGECYCLINE
     Indication: Product used for unknown indication
     Route: 065
  17. LINEZOLID [Concomitant]
     Active Substance: LINEZOLID
     Indication: Product used for unknown indication
     Route: 065
  18. HYDROCORTISONE [Concomitant]
     Active Substance: HYDROCORTISONE
     Indication: Product used for unknown indication
     Route: 065

REACTIONS (1)
  - Rhinocerebral mucormycosis [Fatal]
